FAERS Safety Report 16678225 (Version 1)
Quarter: 2019Q3

REPORT INFORMATION
  Report Type: Spontaneous
  Country: IT (occurrence: IT)
  Receive Date: 20190807
  Receipt Date: 20190807
  Transmission Date: 20191004
  Serious: Yes (Other)
  Sender: FDA-Public Use
  Company Number: IT-SA-2019SA210859

PATIENT
  Age: 41 Year
  Sex: Female

DRUGS (3)
  1. LEMTRADA [Suspect]
     Active Substance: ALEMTUZUMAB
     Indication: MULTIPLE SCLEROSIS
     Dosage: 12 MG, YEARLY
     Route: 042
     Dates: start: 20161214, end: 20180126
  2. LYRICA [Concomitant]
     Active Substance: PREGABALIN
     Indication: NEURALGIA
     Dosage: 150 MG
     Route: 048
     Dates: start: 20120701, end: 20190726
  3. LIORESAL [Concomitant]
     Active Substance: BACLOFEN
     Dosage: 50 MG
     Route: 048
     Dates: start: 20120701, end: 20190726

REACTIONS (1)
  - Alopecia universalis [Not Recovered/Not Resolved]

NARRATIVE: CASE EVENT DATE: 20190115
